FAERS Safety Report 5695247-0 (Version None)
Quarter: 2008Q2

REPORT INFORMATION
  Report Type: 
  Country: None (occurrence: None)
  Receive Date: 20080404
  Receipt Date: 20080307
  Transmission Date: 20081010
  Serious: No
  Sender: FDA-Public Use
  Company Number: US-BOEHRINGER INGELHEIM GMBH, GERMANY-2008-BP-03529BP

PATIENT
  Sex: Female

DRUGS (4)
  1. ZANTAC [Suspect]
     Indication: DYSPEPSIA
     Route: 048
     Dates: start: 20080306
  2. ZANTAC [Suspect]
  3. ZANTAC [Suspect]
     Indication: REFLUX OESOPHAGITIS
  4. CENTRUM SILVER [Concomitant]

REACTIONS (1)
  - DIARRHOEA [None]
